FAERS Safety Report 5116240-2 (Version None)
Quarter: 2006Q3

REPORT INFORMATION
  Report Type: 
  Country: None (occurrence: None)
  Receive Date: 20060927
  Receipt Date: 20060616
  Transmission Date: 20061208
  Serious: Yes (Hospitalization)
  Sender: FDA-Public Use
  Company Number: JP-JPN-A200602116

PATIENT
  Age: 58 Year
  Sex: Male
  Weight: 65 kg

DRUGS (7)
  1. MODACIN [Suspect]
     Indication: STAPHYLOCOCCAL SEPSIS
     Dosage: 1G TWICE PER DAY
     Route: 042
     Dates: start: 20060519, end: 20060524
  2. TARGOCID [Suspect]
     Indication: STAPHYLOCOCCAL SEPSIS
     Dosage: 200MG TWICE PER DAY
     Route: 042
     Dates: start: 20060519, end: 20060524
  3. FOIPAN [Suspect]
     Indication: HYPERAMYLASAEMIA
     Dosage: 100MG PER DAY
     Route: 048
     Dates: start: 20060519, end: 20060529
  4. WARFARIN SODIUM [Suspect]
     Indication: DEEP VEIN THROMBOSIS
     Route: 048
     Dates: start: 20060520, end: 20060604
  5. URSO [Concomitant]
     Indication: CHRONIC HEPATITIS
     Dosage: 100MG THREE TIMES PER DAY
     Route: 048
  6. CHOP CHEMOTHERAPY [Concomitant]
     Indication: LYMPHOMA
  7. ABBOKINASE [Concomitant]
     Indication: DEEP VEIN THROMBOSIS
     Dosage: 6IU6 TWICE PER DAY
     Route: 042
     Dates: start: 20060515, end: 20060522

REACTIONS (4)
  - DEEP VEIN THROMBOSIS [None]
  - EOSINOPHIL COUNT INCREASED [None]
  - EOSINOPHILIA [None]
  - PYREXIA [None]
